FAERS Safety Report 17889392 (Version 3)
Quarter: 2021Q1

REPORT INFORMATION
  Report Type: Spontaneous
  Country: US (occurrence: US)
  Receive Date: 20200612
  Receipt Date: 20210316
  Transmission Date: 20210419
  Serious: No
  Sender: FDA-Public Use
  Company Number: US-PFIZER INC-2020227987

PATIENT
  Age: 66 Year
  Sex: Male
  Weight: 88.45 kg

DRUGS (3)
  1. INLYTA [Suspect]
     Active Substance: AXITINIB
     Indication: RENAL CANCER
     Dosage: 5 MG, 2X/DAY
     Dates: start: 201911
  2. INLYTA [Suspect]
     Active Substance: AXITINIB
     Dosage: 2.5 MG, 1X/DAY, (CALLER CONFIRMED CURRENTLY HE IS TAKING HALF OF A 5MG PILL)
  3. KEYTRUDA [Concomitant]
     Active Substance: PEMBROLIZUMAB
     Dosage: UNK, EVERY 3 WEEKS

REACTIONS (6)
  - Sneezing [Unknown]
  - Rhinorrhoea [Unknown]
  - Diarrhoea [Unknown]
  - Off label use [Unknown]
  - Product prescribing error [Unknown]
  - Dysphonia [Unknown]
